FAERS Safety Report 5303468-1 (Version None)
Quarter: 2007Q2

REPORT INFORMATION
  Report Type: 
  Country: None (occurrence: None)
  Receive Date: 20070420
  Receipt Date: 20070411
  Transmission Date: 20071010
  Serious: Yes (Hospitalization)
  Sender: FDA-Public Use
  Company Number: 2007AP02084

PATIENT
  Age: 84 Year
  Sex: Female

DRUGS (5)
  1. CRESTOR [Suspect]
     Route: 048
     Dates: start: 20070314, end: 20070405
  2. PAXIL [Concomitant]
     Route: 048
  3. BUP-4 [Concomitant]
     Route: 048
  4. PRIMPERAN INJ [Concomitant]
     Route: 048
  5. MERISLON [Concomitant]
     Route: 048

REACTIONS (2)
  - CHROMATURIA [None]
  - ILL-DEFINED DISORDER [None]
